FAERS Safety Report 5292618-1 (Version None)
Quarter: 2007Q2

REPORT INFORMATION
  Report Type: 
  Country: None (occurrence: None)
  Receive Date: 20070404
  Receipt Date: 20070319
  Transmission Date: 20071010
  Serious: Yes (Other)
  Sender: FDA-Public Use
  Company Number: DSA_29652_2007

PATIENT
  Age: 75 Year
  Sex: Male

DRUGS (2)
  1. ENALAPRIL MALEATE [Suspect]
     Dosage: DF PO
     Route: 048
  2. ENALAPRIL MALEATE [Suspect]
     Dosage: DF, A FEW MONTHS

REACTIONS (3)
  - CARDIAC DISORDER [None]
  - DYSPHAGIA [None]
  - DYSPNOEA [None]
